FAERS Safety Report 6642532-1 (Version None)
Quarter: 2010Q1

REPORT INFORMATION
  Report Type: 
  Country: None (occurrence: None)
  Receive Date: 20100316
  Receipt Date: 20100304
  Transmission Date: 20100710
  Serious: Yes (Hospitalization)
  Sender: FDA-Public Use
  Company Number: 003476

PATIENT
  Sex: Female
  Weight: 64 kg

DRUGS (2)
  1. ISOKET (ISOKET) [Suspect]
     Indication: CORONARY ARTERY INSUFFICIENCY
     Dosage: (2.5 MG QD ORAL)
     Route: 048
     Dates: start: 19960601, end: 20100301
  2. DOCITON [Concomitant]

REACTIONS (7)
  - DRUG TOLERANCE DECREASED [None]
  - DYSGEUSIA [None]
  - HYPOSMIA [None]
  - PAROSMIA [None]
  - PERFORMANCE STATUS DECREASED [None]
  - PRURITUS [None]
  - VISUAL IMPAIRMENT [None]
